FAERS Safety Report 16097990 (Version 1)
Quarter: 2019Q1

REPORT INFORMATION
  Report Type: Spontaneous
  Country: FR (occurrence: FR)
  Receive Date: 20190320
  Receipt Date: 20190320
  Transmission Date: 20190418
  Serious: Yes (Death)
  Sender: FDA-Public Use
  Company Number: PHHY2019FR062635

PATIENT
  Age: 93 Year
  Sex: Female
  Weight: 80 kg

DRUGS (1)
  1. ALLOPURINOL. [Suspect]
     Active Substance: ALLOPURINOL
     Indication: PRODUCT USED FOR UNKNOWN INDICATION
     Dosage: UNK
     Route: 048

REACTIONS (5)
  - Pyrexia [Fatal]
  - Decreased appetite [Fatal]
  - Drug reaction with eosinophilia and systemic symptoms [Fatal]
  - Agranulocytosis [Fatal]
  - Necrotising ulcerative gingivostomatitis [Fatal]

NARRATIVE: CASE EVENT DATE: 20190202
